FAERS Safety Report 5917779-X (Version None)
Quarter: 2008Q4

REPORT INFORMATION
  Report Type: 
  Country: None (occurrence: None)
  Receive Date: 20081014
  Receipt Date: 20081006
  Transmission Date: 20090506
  Serious: Yes (Hospitalization, Other)
  Sender: FDA-Public Use
  Company Number: US-BAYER-200833505NA

PATIENT
  Age: 45 Year
  Sex: Male

DRUGS (1)
  1. MAGNEVIST [Suspect]
     Indication: NUCLEAR MAGNETIC RESONANCE IMAGING
     Route: 042
     Dates: start: 20080304, end: 20080304

REACTIONS (5)
  - ERYTHEMA [None]
  - INJECTION SITE PHLEBITIS [None]
  - INJECTION SITE SWELLING [None]
  - SKIN DISCOLOURATION [None]
  - THROMBOSIS [None]
